FAERS Safety Report 11793855 (Version 1)
Quarter: 2015Q4

REPORT INFORMATION
  Report Type: Report from Study
  Country: US (occurrence: US)
  Receive Date: 20151202
  Receipt Date: 20151202
  Transmission Date: 20160305
  Serious: Yes (Hospitalization)
  Sender: FDA-Public Use
  Company Number: PHHO2015US019859

PATIENT
  Age: 68 Year
  Sex: Female

DRUGS (7)
  1. COMPARATOR CARFILZOMIB [Suspect]
     Active Substance: CARFILZOMIB
     Indication: PLASMA CELL MYELOMA
     Dosage: 45 MG/M2, DAY 1, 2, 8, 9, 15, 16
     Route: 042
     Dates: start: 20151019
  2. FARYDAK [Suspect]
     Active Substance: PANOBINOSTAT
     Indication: PLASMA CELL MYELOMA
     Dosage: 20 MG, DAY 1,3,5,8,10,12
     Route: 048
     Dates: start: 20151019
  3. COMPARATOR CARFILZOMIB [Suspect]
     Active Substance: CARFILZOMIB
     Dosage: 45 MG/M2, DAY 1, 2, 8, 9, 15, 16
     Route: 042
     Dates: start: 20151020
  4. COMPARATOR CARFILZOMIB [Suspect]
     Active Substance: CARFILZOMIB
     Dosage: 45 MG/M2, DAY 1, 2, 8, 9, 15, 16
     Route: 042
     Dates: start: 20151024
  5. COMPARATOR CARFILZOMIB [Suspect]
     Active Substance: CARFILZOMIB
     Dosage: 45 MG/M2, DAY 1, 2, 8, 9, 15, 16
     Route: 042
     Dates: start: 20151027
  6. FARYDAK [Suspect]
     Active Substance: PANOBINOSTAT
     Dosage: 20 MG, DAY 1,3,5,8,10,12
     Route: 048
     Dates: start: 20151021
  7. COMPARATOR CARFILZOMIB [Suspect]
     Active Substance: CARFILZOMIB
     Dosage: 45 MG/M2, DAY 1, 2, 8, 9, 15, 16
     Route: 042
     Dates: start: 20151102

REACTIONS (1)
  - Confusional state [Unknown]

NARRATIVE: CASE EVENT DATE: 20151103
